FAERS Safety Report 5442602-X (Version None)
Quarter: 2007Q3

REPORT INFORMATION
  Report Type: 
  Country: None (occurrence: None)
  Receive Date: 20070904
  Receipt Date: 20070829
  Transmission Date: 20080115
  Serious: Yes (Hospitalization)
  Sender: FDA-Public Use
  Company Number: BE-ASTRAZENECA-2007AC01578

PATIENT
  Age: 63 Year
  Sex: Female

DRUGS (4)
  1. SEROQUEL [Suspect]
     Indication: BIPOLAR DISORDER
     Route: 048
  2. CYMBALTA [Concomitant]
  3. ZANTAC 150 [Concomitant]
  4. ESTROGEL [Concomitant]

REACTIONS (4)
  - DEHYDRATION [None]
  - DRUG INTOLERANCE [None]
  - NAUSEA [None]
  - SOMNOLENCE [None]
